FAERS Safety Report 20444317 (Version 1)
Quarter: 2022Q1

REPORT INFORMATION
  Report Type: Spontaneous
  Country: US (occurrence: US)
  Receive Date: 20220208
  Receipt Date: 20220208
  Transmission Date: 20220423
  Serious: Yes (Hospitalization)
  Sender: FDA-Public Use
  Company Number: US-UNITED THERAPEUTICS-UNT-2022-001861

PATIENT
  Age: 77 Year
  Sex: Female

DRUGS (4)
  1. TYVASO [Suspect]
     Active Substance: TREPROSTINIL
     Indication: Pulmonary arterial hypertension
     Dosage: UNK
     Dates: start: 20210720
  2. TYVASO [Suspect]
     Active Substance: TREPROSTINIL
     Dosage: 36 ?G, QID
     Dates: start: 2021, end: 202111
  3. VELETRI [Suspect]
     Active Substance: EPOPROSTENOL
     Indication: Pulmonary arterial hypertension
     Dosage: 0.0049 ?G/KG (1 TIME EVERY 1 MINUTE)
     Route: 042
     Dates: start: 20211213
  4. VELETRI [Suspect]
     Active Substance: EPOPROSTENOL
     Dosage: 0.008 ?G/KG (1 TIME EVERY 1 MINUTE) (11520 NG/KG)
     Route: 042

REACTIONS (3)
  - Peripheral swelling [Unknown]
  - Nausea [Unknown]
  - Therapy interrupted [Unknown]

NARRATIVE: CASE EVENT DATE: 20211101
